FAERS Safety Report 6223477-8 (Version None)
Quarter: 2009Q2

REPORT INFORMATION
  Report Type: 
  Country: None (occurrence: None)
  Receive Date: 20090611
  Receipt Date: 20090608
  Transmission Date: 20091009
  Serious: Yes (Other)
  Sender: FDA-Public Use
  Company Number: US-AMGEN-US339781

PATIENT
  Sex: Male
  Weight: 101.2 kg

DRUGS (5)
  1. NPLATE [Suspect]
     Indication: IDIOPATHIC THROMBOCYTOPENIC PURPURA
     Route: 058
     Dates: start: 20080919, end: 20090414
  2. ALLOPURINOL [Concomitant]
     Route: 065
  3. PREDNISONE [Concomitant]
     Route: 065
  4. SYNTHROID [Concomitant]
     Route: 065
  5. VINCRISTINE [Concomitant]
     Route: 065
     Dates: start: 20080919, end: 20090414

REACTIONS (2)
  - PARAESTHESIA [None]
  - PLATELET COUNT DECREASED [None]
